FAERS Safety Report 11017058 (Version 2)
Quarter: 2015Q2

REPORT INFORMATION
  Report Type: Spontaneous
  Country: US (occurrence: US)
  Receive Date: 20150412
  Receipt Date: 20150525
  Transmission Date: 20150821
  Serious: No
  Sender: FDA-Public Use
  Company Number: US-JNJFOC-20140107576

PATIENT
  Age: 52 Year
  Sex: Female

DRUGS (1)
  1. ORTHO EVRA [Suspect]
     Active Substance: ETHINYL ESTRADIOL\NORELGESTROMIN
     Indication: ACCIDENTAL EXPOSURE TO PRODUCT
     Route: 062
     Dates: start: 200608

REACTIONS (4)
  - Breast swelling [Recovering/Resolving]
  - Alopecia [Recovering/Resolving]
  - Accidental exposure to product [Recovered/Resolved]
  - Breast tenderness [Recovering/Resolving]

NARRATIVE: CASE EVENT DATE: 200608
